FAERS Safety Report 5155806-0 (Version None)
Quarter: 2006Q4

REPORT INFORMATION
  Report Type: 
  Country: None (occurrence: None)
  Receive Date: 20061113
  Receipt Date: 20061031
  Transmission Date: 20070319
  Serious: Yes (Hospitalization)
  Sender: FDA-Public Use
  Company Number: 2006-02863

PATIENT
  Age: 50 Year
  Sex: Female
  Weight: 90.7 kg

DRUGS (5)
  1. VELCADE [Suspect]
     Indication: MANTLE CELL LYMPHOMA
     Dosage: 2.40 MG, INTRAVENOUS
     Route: 042
  2. CYCLOPHOSPHAMIDE [Suspect]
     Indication: MANTLE CELL LYMPHOMA
     Dosage: 720.00 MG, INTRAVENOUS
     Route: 042
  3. RITUXAN (RITUXIMAB) SOLUTION (EXCEPT SYRUP) [Suspect]
     Indication: MANTLE CELL LYMPHOMA
     Dosage: 900.00 MG, INTRAVENOUS
     Route: 042
  4. DOXORUBICIN (DOXORUBICIN) INJECTION [Suspect]
     Indication: MANTLE CELL LYMPHOMA
     Dosage: 60.00 MG, IV DRIP
     Route: 041
  5. DEXAMETHASONE [Suspect]
     Indication: MANTLE CELL LYMPHOMA
     Dosage: 40.00 MG, ORAL
     Route: 048

REACTIONS (13)
  - ALPHA HAEMOLYTIC STREPTOCOCCAL INFECTION [None]
  - CENTRAL LINE INFECTION [None]
  - DEPRESSED LEVEL OF CONSCIOUSNESS [None]
  - HYPOTENSION [None]
  - MENTAL STATUS CHANGES [None]
  - OXYGEN SATURATION DECREASED [None]
  - PURULENCE [None]
  - RIB FRACTURE [None]
  - ROAD TRAFFIC ACCIDENT [None]
  - SEPTIC SHOCK [None]
  - SOMNOLENCE [None]
  - SPINAL COMPRESSION FRACTURE [None]
  - TACHYCARDIA [None]
